FAERS Safety Report 5954166-2 (Version None)
Quarter: 2008Q4

REPORT INFORMATION
  Report Type: 
  Country: None (occurrence: None)
  Receive Date: 20081113
  Receipt Date: 20081113
  Transmission Date: 20090506
  Serious: No
  Sender: FDA-Public Use
  Company Number: None

PATIENT
  Age: 5 Year
  Sex: Male
  Weight: 21.1376 kg

DRUGS (2)
  1. RISPERIDONE [Suspect]
     Indication: IMPULSE-CONTROL DISORDER
     Dosage: 0.5MG QHS PO
     Route: 048
     Dates: start: 20080801
  2. RISPERIDONE [Suspect]
     Indication: POST-TRAUMATIC STRESS DISORDER
     Dosage: 0.5MG QHS PO
     Route: 048
     Dates: start: 20080801

REACTIONS (3)
  - DRUG EFFECT DECREASED [None]
  - PRODUCT QUALITY ISSUE [None]
  - THERAPY REGIMEN CHANGED [None]
